FAERS Safety Report 5285389-6 (Version None)
Quarter: 2007Q1

REPORT INFORMATION
  Report Type: 
  Country: None (occurrence: None)
  Receive Date: 20070328
  Receipt Date: 20070320
  Transmission Date: 20070707
  Serious: Yes (Death, Life-Threatening)
  Sender: FDA-Public Use
  Company Number: 430005E06DEU

PATIENT
  Age: 70 Year
  Sex: Male

DRUGS (4)
  1. NOVANTRONE [Suspect]
     Indication: ACUTE MYELOID LEUKAEMIA
     Dosage: INTRAVENOUS (NOT OTHERWISE SPECIFIED)
     Route: 042
     Dates: start: 20051126, end: 20051128
  2. GEMTUZUMAB OZOGAMICIN (GEMTUUMAB OZOGAMICIN) [Suspect]
     Dosage: 12.18 MG, ONCE
     Dates: start: 20051110, end: 20051110
  3. CYTARABINE [Suspect]
     Dosage: INTRAVENOUS (NOT OTHERWISE SPECIFIED)
     Route: 042
     Dates: start: 20051122, end: 20051130
  4. ETOPOSIDE [Suspect]
     Dosage: INTRAVENOUS (NOT OTHERWISE SPECIFIED)
     Route: 042
     Dates: start: 20051122, end: 20051124

REACTIONS (4)
  - MYOCARDIAL INFARCTION [None]
  - SEPSIS [None]
  - SEPTIC SHOCK [None]
  - VENTRICULAR TACHYCARDIA [None]
